FAERS Safety Report 8354341-6 (Version None)
Quarter: 2012Q2

REPORT INFORMATION
  Report Type: 
  Country: None (occurrence: None)
  Receive Date: 20120511
  Receipt Date: 20120426
  Transmission Date: 20120825
  Serious: Yes (Other)
  Sender: FDA-Public Use
  Company Number: US-ROCHE-1063509

PATIENT

DRUGS (5)
  1. LIPITOR [Concomitant]
  2. TORADOL [Suspect]
     Indication: PRODUCT USED FOR UNKNOWN INDICATION
  3. ANTIVERT [Concomitant]
  4. CALAN [Concomitant]
  5. ZYRTEC [Concomitant]

REACTIONS (38)
  - DEMYELINATION [None]
  - ARTHROPOD STING [None]
  - CARPAL TUNNEL SYNDROME [None]
  - CHRONIC SINUSITIS [None]
  - SCOLIOSIS [None]
  - PAIN OF SKIN [None]
  - VISION BLURRED [None]
  - BURSITIS [None]
  - CHRONIC FATIGUE SYNDROME [None]
  - ULCER [None]
  - PARAESTHESIA [None]
  - ANXIETY [None]
  - ARTHRITIS [None]
  - DEPRESSION [None]
  - FIBROCYSTIC BREAST DISEASE [None]
  - HAEMORRHOIDS [None]
  - SLEEP DISORDER [None]
  - STRESS URINARY INCONTINENCE [None]
  - HIATUS HERNIA [None]
  - MITRAL VALVE PROLAPSE [None]
  - MYOFASCITIS [None]
  - NASAL POLYPS [None]
  - UROGENITAL PROLAPSE [None]
  - RAYNAUD'S PHENOMENON [None]
  - TRANSIENT ISCHAEMIC ATTACK [None]
  - TREMOR [None]
  - APHASIA [None]
  - ASTHMA [None]
  - HYPERLIPIDAEMIA [None]
  - BURNING SENSATION [None]
  - FIBROMYALGIA [None]
  - VESTIBULAR DISORDER [None]
  - SYNCOPE [None]
  - AMNESIA [None]
  - ABASIA [None]
  - ALOPECIA [None]
  - CEREBRAL CYST [None]
  - EATING DISORDER [None]
